FAERS Safety Report 15532374 (Version 4)
Quarter: 2018Q4

REPORT INFORMATION
  Report Type: Spontaneous
  Country: JP (occurrence: JP)
  Receive Date: 20181019
  Receipt Date: 20181229
  Transmission Date: 20190205
  Serious: Yes (Hospitalization, Other)
  Sender: FDA-Public Use
  Company Number: JP-GLAXOSMITHKLINE-JP2018JPN187470

PATIENT
  Age: 94 Year
  Sex: Male

DRUGS (8)
  1. URIEF [Concomitant]
     Active Substance: SILODOSIN
     Dosage: UNK
  2. AIMIX [Concomitant]
     Active Substance: AMLODIPINE BESYLATE\IRBESARTAN
     Dosage: UNK
  3. AVOLVE [Suspect]
     Active Substance: DUTASTERIDE
     Indication: BENIGN PROSTATIC HYPERPLASIA
     Dosage: 0.5 MG, UNK
     Route: 048
     Dates: start: 2017
  4. LANSOPRAZOLE. [Suspect]
     Active Substance: LANSOPRAZOLE
     Dosage: 15 MG, UNK
     Route: 048
  5. MOSAPRIDE CITRATE [Concomitant]
     Active Substance: MOSAPRIDE CITRATE
     Dosage: UNK
  6. BAYASPIRIN [Suspect]
     Active Substance: ASPIRIN
     Dosage: 100 MG, UNK
     Route: 048
  7. MAGMITT [Concomitant]
     Active Substance: MAGNESIUM OXIDE
     Dosage: UNK
  8. PILSICAINIDE HYDROCHLORIDE HYDRATE [Concomitant]
     Active Substance: PILSICAINIDE HYDROCHLORIDE HEMIHYDRATE
     Dosage: UNK

REACTIONS (4)
  - Blood potassium decreased [Recovered/Resolved]
  - Cardiac failure [Recovered/Resolved]
  - Dysuria [Recovered/Resolved]
  - Oedema [Recovered/Resolved]

NARRATIVE: CASE EVENT DATE: 2018
